FAERS Safety Report 6718992-4 (Version None)
Quarter: 2010Q2

REPORT INFORMATION
  Report Type: 
  Country: None (occurrence: None)
  Receive Date: 20100507
  Receipt Date: 20100423
  Transmission Date: 20101027
  Serious: Yes (Other)
  Sender: FDA-Public Use
  Company Number: US-1181387

PATIENT
  Sex: Female

DRUGS (3)
  1. TOBRADEX [Suspect]
     Indication: DACRYOCANALICULITIS
     Dosage: OPHTHALMIC
     Route: 003
  2. TOBRADEX [Suspect]
     Indication: POSTOPERATIVE CARE
     Dosage: OPHTHALMIC
     Route: 003
  3. TRAVATAN [Suspect]
     Indication: INTRAOCULAR PRESSURE INCREASED
     Dosage: 1 GTT QD OU, 1 GTT OU QD OPHTHALMIC
     Route: 047

REACTIONS (4)
  - CATARACT [None]
  - DRUG INEFFECTIVE [None]
  - EYELID PTOSIS [None]
  - INTRAOCULAR PRESSURE INCREASED [None]
